FAERS Safety Report 9522928 (Version 1)
Quarter: 2013Q3

REPORT INFORMATION
  Report Type: Report from Study
  Country: GB (occurrence: GB)
  Receive Date: 20130913
  Receipt Date: 20130913
  Transmission Date: 20140515
  Serious: Yes (Other)
  Sender: FDA-Public Use
  Company Number: GB-ROCHE-1272941

PATIENT
  Age: 68 Year
  Sex: Male
  Weight: 72.3 kg

DRUGS (4)
  1. BEVACIZUMAB [Suspect]
     Indication: GASTRIC CANCER
     Dosage: MOST RECENT DOSE: 560MGON 14/MAR/2013.
     Route: 042
     Dates: start: 20120928
  2. CAPECITABINE [Suspect]
     Indication: GASTRIC CANCER
     Dosage: MOST RECENT DOSE: 2500MG ON 14/MAR/2013.
     Route: 048
     Dates: start: 20120928
  3. EPIRUBICIN [Suspect]
     Indication: GASTRIC CANCER
     Dosage: MOST RECENT DOSE: 94MG ON 14/MAR/2013.
     Route: 042
     Dates: start: 20120928
  4. CISPLATIN [Suspect]
     Indication: GASTRIC CANCER
     Dosage: MOST RECENT DOSE: 115MG ON 14/MAR/2013.
     Route: 042
     Dates: start: 20120928

REACTIONS (1)
  - Impaired healing [Recovered/Resolved]
